FAERS Safety Report 11644491 (Version 1)
Quarter: 2015Q4

REPORT INFORMATION
  Report Type: Spontaneous
  Country: US (occurrence: None)
  Receive Date: 20151019
  Receipt Date: 20151019
  Transmission Date: 20160304
  Serious: Yes (Other)
  Sender: FDA-Public Use
  Company Number: None

PATIENT
  Age: 31 Year
  Sex: Female
  Weight: 78.47 kg

DRUGS (3)
  1. CHANTIX [Suspect]
     Active Substance: VARENICLINE TARTRATE
     Indication: EX-TOBACCO USER
     Dosage: 1..ST WK 2X 2ND WEEK
     Route: 048
     Dates: start: 20151017, end: 20151017
  2. CELEXA [Concomitant]
     Active Substance: CITALOPRAM HYDROBROMIDE
  3. SUBUTEC [Concomitant]

REACTIONS (4)
  - Fatigue [None]
  - Seizure [None]
  - Dizziness [None]
  - Eye swelling [None]

NARRATIVE: CASE EVENT DATE: 20151016
